FAERS Safety Report 18960101 (Version 2)
Quarter: 2021Q1

REPORT INFORMATION
  Report Type: Other
  Country: US (occurrence: US)
  Receive Date: 20210302
  Receipt Date: 20210312
  Transmission Date: 20210420
  Serious: Yes (Hospitalization, Other)
  Sender: FDA-Public Use
  Company Number: US-ROCHE-2775668

PATIENT
  Age: 44 Year
  Sex: Female
  Weight: 54.03 kg

DRUGS (1)
  1. OCREVUS [Suspect]
     Active Substance: OCRELIZUMAB
     Indication: RELAPSING-REMITTING MULTIPLE SCLEROSIS
     Route: 042
     Dates: start: 20180905

REACTIONS (9)
  - Dysphonia [Not Recovered/Not Resolved]
  - Liver injury [Unknown]
  - Dysphonia [Recovering/Resolving]
  - Multiple sclerosis relapse [Recovered/Resolved]
  - Cough [Recovering/Resolving]
  - Cardiac dysfunction [Unknown]
  - COVID-19 pneumonia [Recovered/Resolved]
  - Hepatomegaly [Not Recovered/Not Resolved]
  - Memory impairment [Unknown]

NARRATIVE: CASE EVENT DATE: 202010
